FAERS Safety Report 12049919 (Version 1)
Quarter: 2016Q1

REPORT INFORMATION
  Report Type: Spontaneous
  Country: CH (occurrence: CH)
  Receive Date: 20160208
  Receipt Date: 20160208
  Transmission Date: 20160526
  Serious: Yes (Hospitalization)
  Sender: FDA-Public Use
  Company Number: CH-EGALET US INC-CH-2016EGA000019

PATIENT

DRUGS (2)
  1. OXYCODONE HYDROCHLORIDE. [Suspect]
     Active Substance: OXYCODONE HYDROCHLORIDE
     Indication: RADICULAR PAIN
     Dosage: 40 MG, EACH MORNING AND EVENING
  2. NALMEFENE [Suspect]
     Active Substance: NALMEFENE
     Indication: ALCOHOL ABUSE
     Dosage: 18 MG, UNK
     Route: 048

REACTIONS (5)
  - Drug withdrawal syndrome [Recovered/Resolved]
  - Abdominal pain [Recovered/Resolved]
  - Nausea [Recovered/Resolved]
  - Drug interaction [Recovered/Resolved]
  - Discomfort [Recovered/Resolved]
